FAERS Safety Report 7864494-1 (Version None)
Quarter: 2011Q4

REPORT INFORMATION
  Report Type: 
  Country: None (occurrence: None)
  Receive Date: 20111026
  Receipt Date: 20111021
  Transmission Date: 20120403
  Serious: Yes (Death, Hospitalization, Other)
  Sender: FDA-Public Use
  Company Number: 2011SP034807

PATIENT
  Age: 57 Year
  Sex: Female

DRUGS (3)
  1. NASONEX [Suspect]
     Indication: RHINITIS
     Dosage: 50 MCG;D;NAS
     Route: 045
     Dates: start: 20090610
  2. CENTYL WITH POTASSIUM CHLORIDE (BENDROFLUMETHIAZIDE/POTASSIUM CHLORIDE [Concomitant]
  3. CORODIL (ENALAPRIL MALEATE) [Concomitant]

REACTIONS (12)
  - ASPIRATION [None]
  - EPISTAXIS [None]
  - CARDIOMEGALY [None]
  - DYSPNOEA [None]
  - PALLOR [None]
  - CARDIAC ARREST [None]
  - MALAISE [None]
  - EXSANGUINATION [None]
  - ARTERIOSCLEROSIS CORONARY ARTERY [None]
  - COLD SWEAT [None]
  - NEPHROSCLEROSIS [None]
  - HYPERTENSION [None]
